FAERS Safety Report 25922104 (Version 1)
Quarter: 2025Q4

REPORT INFORMATION
  Report Type: Spontaneous
  Country: US (occurrence: US)
  Receive Date: 20251015
  Receipt Date: 20251015
  Transmission Date: 20260119
  Serious: No
  Sender: SANOFI AVENTIS
  Company Number: US-SA-2025SA306065

PATIENT
  Age: 84 Year
  Sex: Female
  Weight: 54.55 kg

DRUGS (1)
  1. DUPIXENT [Suspect]
     Active Substance: DUPILUMAB
     Indication: Dermatitis atopic
     Dosage: 600 MG 1X
     Route: 058
     Dates: start: 20251006, end: 20251006

REACTIONS (5)
  - Malaise [Unknown]
  - Chest discomfort [Unknown]
  - Chest pain [Unknown]
  - Painful respiration [Unknown]
  - Arthralgia [Unknown]

NARRATIVE: CASE EVENT DATE: 20251006
